FAERS Safety Report 15740394 (Version 1)
Quarter: 2018Q4

REPORT INFORMATION
  Report Type: Spontaneous
  Country: US (occurrence: US)
  Receive Date: 20181219
  Receipt Date: 20181219
  Transmission Date: 20190205
  Serious: Yes (Other)
  Sender: FDA-Public Use
  Company Number: US-BAYER-2018-231003

PATIENT
  Sex: Male

DRUGS (2)
  1. NEXAVAR [Suspect]
     Active Substance: SORAFENIB
     Indication: HEPATIC CANCER
     Dosage: LOWER DOSE (UNK)
     Dates: start: 2018
  2. NEXAVAR [Suspect]
     Active Substance: SORAFENIB
     Indication: HEPATIC CANCER
     Dosage: UNK
     Dates: start: 2018, end: 2018

REACTIONS (5)
  - Tumour marker increased [None]
  - Internal haemorrhage [None]
  - Drug ineffective [None]
  - Blood bilirubin increased [None]
  - Expired product administered [None]

NARRATIVE: CASE EVENT DATE: 2018
